FAERS Safety Report 6566702-6 (Version None)
Quarter: 2010Q1

REPORT INFORMATION
  Report Type: 
  Country: None (occurrence: None)
  Receive Date: 20100129
  Receipt Date: 20090924
  Transmission Date: 20100710
  Serious: Yes (Hospitalization)
  Sender: FDA-Public Use
  Company Number: 2009BH014175

PATIENT
  Age: 58 Year
  Sex: Female

DRUGS (13)
  1. DIANEAL [Suspect]
     Indication: PERITONEAL DIALYSIS
     Dosage: IP
     Route: 033
     Dates: start: 20010801
  2. EXTRANEAL [Suspect]
     Indication: PERITONEAL DIALYSIS
     Dosage: IP
     Route: 033
     Dates: start: 20010801
  3. LEXAPRO [Concomitant]
  4. REGLAN [Concomitant]
  5. PLAVIX [Concomitant]
  6. ZETIA [Concomitant]
  7. POTASSIUM [Concomitant]
  8. GABAPENTIN [Concomitant]
  9. KLONOPIN [Concomitant]
  10. SEVELAMER [Concomitant]
  11. REGULAR INSULIN [Concomitant]
  12. SENSIPAR [Concomitant]
  13. TUMS [Concomitant]

REACTIONS (4)
  - CHILLS [None]
  - MEDICAL DEVICE COMPLICATION [None]
  - PERITONITIS [None]
  - PYREXIA [None]
